FAERS Safety Report 18170706 (Version 1)
Quarter: 2020Q3

REPORT INFORMATION
  Report Type: Spontaneous
  Country: US (occurrence: US)
  Receive Date: 20200819
  Receipt Date: 20200819
  Transmission Date: 20201103
  Serious: Yes (Hospitalization, Other)
  Sender: FDA-Public Use
  Company Number: US-SHIRE-US202026335

PATIENT
  Age: 15 Year
  Sex: Male

DRUGS (9)
  1. CEPROTIN [Suspect]
     Active Substance: PROTEIN C
     Dosage: UNK
     Route: 065
  2. CEPROTIN [Suspect]
     Active Substance: PROTEIN C
     Dosage: UNK
     Route: 065
  3. CEPROTIN [Suspect]
     Active Substance: PROTEIN C
     Dosage: UNK
     Route: 065
  4. CEPROTIN [Suspect]
     Active Substance: PROTEIN C
     Dosage: UNK
     Route: 065
  5. CEPROTIN [Suspect]
     Active Substance: PROTEIN C
     Dosage: UNK
     Route: 065
  6. CEPROTIN [Suspect]
     Active Substance: PROTEIN C
     Dosage: UNK
     Route: 065
  7. CEPROTIN [Suspect]
     Active Substance: PROTEIN C
     Indication: PRODUCT USED FOR UNKNOWN INDICATION
     Dosage: UNK
     Route: 065
  8. CEPROTIN [Suspect]
     Active Substance: PROTEIN C
     Dosage: UNK
     Route: 065
  9. ZIRALTON [Concomitant]
     Indication: PRODUCT USED FOR UNKNOWN INDICATION

REACTIONS (6)
  - Swelling face [Unknown]
  - Toothache [Unknown]
  - Tongue disorder [Unknown]
  - Fall [Unknown]
  - Retinal detachment [Unknown]
  - Vomiting [Unknown]
